FAERS Safety Report 15956004 (Version 1)
Quarter: 2019Q1

REPORT INFORMATION
  Report Type: Spontaneous
  Country: US (occurrence: US)
  Receive Date: 20190213
  Receipt Date: 20190213
  Transmission Date: 20190417
  Serious: No
  Sender: FDA-Public Use
  Company Number: US-MYLANLABS-2019M1008445

PATIENT
  Sex: Female
  Weight: 166 kg

DRUGS (4)
  1. ESTRADIOL TRANSDERMAL SYSTEM [Suspect]
     Active Substance: ESTRADIOL
     Indication: METRORRHAGIA
     Dosage: UNK UNK, QW
     Route: 062
     Dates: start: 2018
  2. ESTRADIOL TRANSDERMAL SYSTEM [Suspect]
     Active Substance: ESTRADIOL
     Indication: MENOPAUSAL SYMPTOMS
     Dosage: UNK, QW
     Route: 062
     Dates: start: 2018
  3. ESTRADIOL TRANSDERMAL SYSTEM [Suspect]
     Active Substance: ESTRADIOL
     Indication: MENOPAUSAL SYMPTOMS
  4. ESTRADIOL TRANSDERMAL SYSTEM [Suspect]
     Active Substance: ESTRADIOL
     Indication: METRORRHAGIA
     Dosage: UNK, QW
     Route: 062
     Dates: start: 2018

REACTIONS (5)
  - Application site pruritus [Unknown]
  - Application site scar [Unknown]
  - Product quality issue [Unknown]
  - Application site exfoliation [Unknown]
  - Product adhesion issue [Unknown]
